FAERS Safety Report 5764926-9 (Version None)
Quarter: 2008Q2

REPORT INFORMATION
  Report Type: 
  Country: None (occurrence: None)
  Receive Date: 20080611
  Receipt Date: 20080603
  Transmission Date: 20081010
  Serious: Yes (Hospitalization)
  Sender: FDA-Public Use
  Company Number: A0730882A

PATIENT
  Age: 56 Year
  Sex: Female

DRUGS (3)
  1. AVODART [Suspect]
     Indication: ILL-DEFINED DISORDER
     Dosage: .5MG PER DAY
     Route: 048
     Dates: start: 20080407, end: 20080428
  2. MICARDIS HCT [Concomitant]
  3. ALTOPREV [Concomitant]

REACTIONS (4)
  - DRUG DISPENSING ERROR [None]
  - HEART RATE INCREASED [None]
  - MEDICATION ERROR [None]
  - MYALGIA [None]
